FAERS Safety Report 6691742 (Version 7)
Quarter: 2021Q1

REPORT INFORMATION
  Report Type: Spontaneous
  Country: GB (occurrence: GB)
  Receive Date: 20080707
  Receipt Date: 20210322
  Transmission Date: 20210420
  Serious: Yes (Death, Other)
  Sender: FDA-Public Use
  Company Number: PHHY2008GB11480

PATIENT
  Age: 22 Year
  Sex: Female

DRUGS (21)
  1. LEVETIRACETAM. [Concomitant]
     Active Substance: LEVETIRACETAM
     Indication: PRODUCT USED FOR UNKNOWN INDICATION
     Dosage: UNK
     Route: 065
  2. CICLOSPORIN [Suspect]
     Active Substance: CYCLOSPORINE
     Indication: ENTEROCOCCAL INFECTION
     Dosage: UNK UNK, UNK
     Route: 065
  3. MEROPENEM. [Suspect]
     Active Substance: MEROPENEM
     Indication: FUNGAL INFECTION
  4. CICLOSPORIN [Suspect]
     Active Substance: CYCLOSPORINE
     Indication: NEUTROPENIC SEPSIS
  5. CUBICIN [Suspect]
     Active Substance: DAPTOMYCIN
     Indication: HAEMORRHAGE
     Dosage: 350 MG, Q48H
     Route: 042
     Dates: start: 20080609, end: 20080618
  6. MEROPENEM. [Suspect]
     Active Substance: MEROPENEM
     Indication: NEUTROPENIC SEPSIS
     Dosage: 1 G, BID
     Route: 042
     Dates: start: 20080529
  7. MEROPENEM. [Suspect]
     Active Substance: MEROPENEM
     Indication: HAEMORRHAGE
  8. CASPOFUNGIN [Concomitant]
     Active Substance: CASPOFUNGIN
     Indication: FUNGAL INFECTION
     Dosage: 35 MG, QD
     Route: 042
     Dates: start: 200805
  9. TRANEXAMIC ACID. [Concomitant]
     Active Substance: TRANEXAMIC ACID
     Indication: HAEMORRHAGE
     Dosage: 1 G, TID
     Route: 042
     Dates: start: 20080602
  10. CUBICIN [Suspect]
     Active Substance: DAPTOMYCIN
     Indication: ENTEROCOCCAL INFECTION
     Dosage: 350 MG, Q48H
     Route: 042
     Dates: start: 20080609
  11. CUBICIN [Suspect]
     Active Substance: DAPTOMYCIN
     Indication: FUNGAL INFECTION
  12. CICLOSPORIN [Suspect]
     Active Substance: CYCLOSPORINE
     Indication: HAEMORRHAGE
  13. MEROPENEM. [Suspect]
     Active Substance: MEROPENEM
     Indication: ENTEROCOCCAL INFECTION
  14. MEROPENEM. [Suspect]
     Active Substance: MEROPENEM
     Indication: APLASTIC ANAEMIA
  15. CICLOSPORIN [Suspect]
     Active Substance: CYCLOSPORINE
     Indication: APLASTIC ANAEMIA
     Dosage: UNK
     Route: 065
     Dates: start: 200805
  16. THIOPENTAL [Concomitant]
     Active Substance: THIOPENTAL
     Indication: PRODUCT USED FOR UNKNOWN INDICATION
     Dosage: UNK
     Route: 065
  17. CUBICIN [Suspect]
     Active Substance: DAPTOMYCIN
     Indication: NEUTROPENIC SEPSIS
  18. CICLOSPORIN [Suspect]
     Active Substance: CYCLOSPORINE
     Indication: FUNGAL INFECTION
  19. TRANEXAMIC ACID. [Concomitant]
     Active Substance: TRANEXAMIC ACID
     Dosage: UNK UNK, UNK
     Route: 065
     Dates: start: 20080602, end: 20080618
  20. CUBICIN [Suspect]
     Active Substance: DAPTOMYCIN
     Indication: APLASTIC ANAEMIA
     Dosage: 350 MG, QOD
     Route: 041
     Dates: start: 20080609
  21. TRANEXAMIC ACID. [Concomitant]
     Active Substance: TRANEXAMIC ACID
     Dosage: 1 GRAM, TID
     Route: 042
     Dates: start: 20080602, end: 20080618

REACTIONS (7)
  - Haemorrhage intracranial [Fatal]
  - Brain oedema [Fatal]
  - Enterococcal sepsis [Unknown]
  - Fungal infection [Unknown]
  - Nosocomial infection [Unknown]
  - Seizure [Unknown]
  - Death [Fatal]

NARRATIVE: CASE EVENT DATE: 20080616
